FAERS Safety Report 5000574-6 (Version None)
Quarter: 2006Q2

REPORT INFORMATION
  Report Type: 
  Country: None (occurrence: None)
  Receive Date: 20060512
  Receipt Date: 20051220
  Transmission Date: 20061013
  Serious: Yes (Life-Threatening)
  Sender: FDA-Public Use
  Company Number: JP-ABBOTT-05P-087-0320319-00

PATIENT
  Sex: Female

DRUGS (4)
  1. CLARITHROMYCIN [Suspect]
     Indication: HELICOBACTER INFECTION
     Route: 048
     Dates: start: 20051205, end: 20051212
  2. TAKEPRON CAPSULES [Suspect]
     Indication: HELICOBACTER INFECTION
     Route: 048
     Dates: start: 20051205, end: 20051212
  3. TAKEPRON CAPSULES [Suspect]
     Indication: GASTRIC ULCER
     Route: 048
     Dates: start: 20051128, end: 20051204
  4. AMOXICILLIN TRIHYDRATE [Suspect]
     Indication: HELICOBACTER INFECTION
     Route: 048
     Dates: start: 20051205, end: 20051212

REACTIONS (4)
  - ANOREXIA [None]
  - HEPATIC FUNCTION ABNORMAL [None]
  - JAUNDICE [None]
  - X-RAY ABNORMAL [None]
